FAERS Safety Report 8585528-5 (Version None)
Quarter: 2012Q3

REPORT INFORMATION
  Report Type: 
  Country: None (occurrence: None)
  Receive Date: 20120810
  Receipt Date: 20120806
  Transmission Date: 20120928
  Serious: No
  Sender: FDA-Public Use
  Company Number: US-B.I. PHARMACEUTICALS,INC./RIDGEFIELD-2012-BP-17636BP

PATIENT
  Sex: Female

DRUGS (2)
  1. SPIRIVA [Suspect]
  2. OXYGEN [Concomitant]

REACTIONS (3)
  - VISUAL IMPAIRMENT [None]
  - RASH [None]
  - PRURITUS [None]
